FAERS Safety Report 14578965 (Version 1)
Quarter: 2018Q1

REPORT INFORMATION
  Report Type: Spontaneous
  Country: GB (occurrence: GB)
  Receive Date: 20180227
  Receipt Date: 20180227
  Transmission Date: 20180509
  Serious: Yes (Life-Threatening, Other)
  Sender: FDA-Public Use
  Company Number: GB-OTSUKA-DJ20071571

PATIENT

DRUGS (4)
  1. ANTIHISTAMINE DRUGS [Concomitant]
     Route: 048
  2. PENICILLIN [Suspect]
     Active Substance: PENICILLIN
     Indication: PHARYNGITIS
     Route: 048
     Dates: start: 20070711, end: 20070716
  3. ABILIFY [Suspect]
     Active Substance: ARIPIPRAZOLE
     Indication: BIPOLAR DISORDER
     Route: 048
     Dates: end: 20070712
  4. LITHIUM CARBONATE. [Suspect]
     Active Substance: LITHIUM CARBONATE
     Indication: BIPOLAR DISORDER
     Route: 048

REACTIONS (2)
  - Drug interaction [Recovering/Resolving]
  - Neuroleptic malignant syndrome [Recovering/Resolving]

NARRATIVE: CASE EVENT DATE: 20070711
